FAERS Safety Report 16972294 (Version 3)
Quarter: 2020Q1

REPORT INFORMATION
  Report Type: Spontaneous
  Country: BR (occurrence: BR)
  Receive Date: 20191029
  Receipt Date: 20200114
  Transmission Date: 20200409
  Serious: Yes (Other)
  Sender: FDA-Public Use
  Company Number: BR-NOVOPROD-692976

PATIENT
  Age: 26 Year
  Sex: Female
  Weight: 75 kg

DRUGS (1)
  1. SAXENDA [Suspect]
     Active Substance: LIRAGLUTIDE
     Indication: WEIGHT CONTROL
     Dosage: UNK
     Route: 065

REACTIONS (11)
  - Syncope [Unknown]
  - Hunger [Unknown]
  - Feeling abnormal [Unknown]
  - Dysgeusia [Unknown]
  - Weight increased [Unknown]
  - Food craving [Unknown]
  - Headache [Unknown]
  - Nausea [Not Recovered/Not Resolved]
  - Vomiting [Unknown]
  - Asthenia [Not Recovered/Not Resolved]
  - Dizziness [Not Recovered/Not Resolved]

NARRATIVE: CASE EVENT DATE: 201910
